FAERS Safety Report 10356077 (Version 2)
Quarter: 2014Q3

REPORT INFORMATION
  Report Type: Spontaneous
  Country: US (occurrence: US)
  Receive Date: 20140801
  Receipt Date: 20140926
  Transmission Date: 20150326
  Serious: No
  Sender: FDA-Public Use
  Company Number: US-BIOGENIDEC-2014BI075363

PATIENT
  Sex: Female

DRUGS (1)
  1. AVONEX [Suspect]
     Active Substance: INTERFERON BETA-1A
     Indication: MULTIPLE SCLEROSIS
     Route: 030
     Dates: start: 20120913, end: 20140704

REACTIONS (9)
  - Injection site swelling [Unknown]
  - Ataxia [Unknown]
  - Nausea [Unknown]
  - Injection site induration [Unknown]
  - Abasia [Unknown]
  - Feeling cold [Unknown]
  - Injection site pain [Unknown]
  - Contusion [Unknown]
  - Drug ineffective [Unknown]
